FAERS Safety Report 9752979 (Version 1)
Quarter: 2013Q4

REPORT INFORMATION
  Report Type: Spontaneous
  Country: FR (occurrence: FR)
  Receive Date: 20131213
  Receipt Date: 20131213
  Transmission Date: 20140711
  Serious: Yes (Other)
  Sender: FDA-Public Use
  Company Number: FR-BAYER-2013-148388

PATIENT
  Age: 87 Year
  Sex: Female

DRUGS (1)
  1. CIFLOX [Suspect]
     Indication: URINARY TRACT INFECTION
     Dosage: 500 MG, BID
     Route: 048
     Dates: start: 20131015, end: 20131018

REACTIONS (2)
  - Condition aggravated [Recovered/Resolved]
  - Confusional state [Recovered/Resolved]
